FAERS Safety Report 5631583-1 (Version None)
Quarter: 2008Q1

REPORT INFORMATION
  Report Type: 
  Country: None (occurrence: None)
  Receive Date: 20080215
  Receipt Date: 20080204
  Transmission Date: 20080703
  Serious: Yes (Hospitalization)
  Sender: FDA-Public Use
  Company Number: WAES 0711USA04325

PATIENT
  Age: 66 Year
  Sex: Male
  Weight: 52.1637 kg

DRUGS (9)
  1. CAP VORINOSTAT 400 MG [Suspect]
     Indication: LUNG NEOPLASM MALIGNANT
     Dosage: 400 MG/ DAILY/ PO
     Route: 048
     Dates: start: 20071106, end: 20071107
  2. SOLN PEMETREXED DISODIUM UNK [Suspect]
     Indication: LUNG NEOPLASM MALIGNANT
     Dosage: 800 MG/ 1X/ IV
     Route: 042
     Dates: start: 20071109, end: 20071109
  3. CARDIZEM [Concomitant]
  4. IMDUR [Concomitant]
  5. PRILOSEC [Concomitant]
  6. ZESTRIL [Concomitant]
  7. ALBUTEROL [Concomitant]
  8. ASPIRIN [Concomitant]
  9. THEOPHYLLINE [Concomitant]

REACTIONS (10)
  - DRUG TOLERANCE DECREASED [None]
  - EPISTAXIS [None]
  - HAEMOGLOBIN DECREASED [None]
  - HYPOTENSION [None]
  - MALIGNANT NEOPLASM PROGRESSION [None]
  - METASTASES TO LIVER [None]
  - METASTASES TO SPLEEN [None]
  - PERFORMANCE STATUS DECREASED [None]
  - PLATELET COUNT DECREASED [None]
  - THROMBOCYTOPENIA [None]
